FAERS Safety Report 10100702 (Version 1)
Quarter: 2014Q2

REPORT INFORMATION
  Report Type: Spontaneous
  Country: US (occurrence: US)
  Receive Date: 20140423
  Receipt Date: 20140423
  Transmission Date: 20141212
  Serious: Yes (Hospitalization)
  Sender: FDA-Public Use
  Company Number: US-BAXTER-2014BAX019902

PATIENT
  Age: 2 Year
  Sex: Female

DRUGS (7)
  1. VANCOMYCIN INJECTION, USP [Suspect]
     Indication: SEPSIS
     Dosage: 14-DAY COURSE
     Route: 065
  2. CEFEPIME INJECTION [Suspect]
     Indication: SEPSIS
     Dosage: 14-DAY COURSE
     Route: 065
  3. NAFCILLIN INJECTION, USP [Suspect]
     Indication: SEPSIS
     Dosage: 14-DAY COURSE
     Route: 065
  4. FLUCONAZOLE INJECTION, USP [Suspect]
     Indication: SEPSIS
     Dosage: 14-DAY COURSE
     Route: 065
  5. GENTAMICIN SULFATE IN 0.9% SODIUM CHLORIDE INJECTION [Suspect]
     Indication: SEPSIS
     Dosage: 14-DAY COURSE
     Route: 065
  6. CLINDAMYCIN [Suspect]
     Indication: SEPSIS
     Dosage: 14-DAY COURSE
     Route: 065
  7. DOPAMINE [Concomitant]
     Indication: PRODUCT USED FOR UNKNOWN INDICATION
     Route: 065

REACTIONS (3)
  - Renal failure acute [Unknown]
  - Hypertension [Unknown]
  - Cardiac failure acute [Unknown]
